FAERS Safety Report 25813685 (Version 1)
Quarter: 2025Q3

REPORT INFORMATION
  Report Type: Spontaneous
  Country: BR (occurrence: BR)
  Receive Date: 20250917
  Receipt Date: 20250917
  Transmission Date: 20251020
  Serious: Yes (Death, Life-Threatening, Other)
  Sender: ROCHE
  Company Number: BR-BoehringerIngelheim-2025-BI-087985

PATIENT
  Age: 64 Year
  Sex: Female

DRUGS (1)
  1. ALTEPLASE [Suspect]
     Active Substance: ALTEPLASE
     Indication: Ischaemic stroke
     Route: 065
     Dates: start: 20250806, end: 20250806

REACTIONS (10)
  - Face oedema [Not Recovered/Not Resolved]
  - Laryngeal oedema [Recovered/Resolved]
  - Respiratory disorder [Not Recovered/Not Resolved]
  - Vertebrobasilar stroke [Fatal]
  - Respiratory failure [Unknown]
  - Locked-in syndrome [Unknown]
  - Depressed level of consciousness [Unknown]
  - Nervous system disorder [Unknown]
  - Cranial nerve disorder [Unknown]
  - Facial paralysis [Unknown]

NARRATIVE: CASE EVENT DATE: 20250806
